FAERS Safety Report 24634242 (Version 3)
Quarter: 2025Q1

REPORT INFORMATION
  Report Type: Spontaneous
  Country: CA (occurrence: CA)
  Receive Date: 20241119
  Receipt Date: 20250217
  Transmission Date: 20250409
  Serious: Yes (Other)
  Sender: INTERCEPT PHARMACEUTICALS
  Company Number: CA-ADVANZ PHARMA-202411009155

PATIENT
  Age: 67 Year
  Sex: Female

DRUGS (11)
  1. OCALIVA [Suspect]
     Active Substance: OBETICHOLIC ACID
     Indication: Primary biliary cholangitis
     Route: 048
     Dates: start: 20240815, end: 20250108
  2. URSODIOL [Concomitant]
     Active Substance: URSODIOL
  3. CRESTOR [Concomitant]
     Active Substance: ROSUVASTATIN CALCIUM
  4. CRESTOR [Concomitant]
     Active Substance: ROSUVASTATIN CALCIUM
  5. CRESTOR [Concomitant]
     Active Substance: ROSUVASTATIN CALCIUM
  6. SYNTHROID [Concomitant]
     Active Substance: LEVOTHYROXINE SODIUM
  7. SYNTHROID [Concomitant]
     Active Substance: LEVOTHYROXINE SODIUM
  8. SYNTHROID [Concomitant]
     Active Substance: LEVOTHYROXINE SODIUM
  9. ZOPICLONE [Concomitant]
     Active Substance: ZOPICLONE
  10. ZOPICLONE [Concomitant]
     Active Substance: ZOPICLONE
  11. ZOPICLONE [Concomitant]
     Active Substance: ZOPICLONE

REACTIONS (9)
  - Axillary nerve injury [Unknown]
  - Decreased appetite [Unknown]
  - Feeling abnormal [Unknown]
  - Malaise [Unknown]
  - Hypokinesia [Recovered/Resolved]
  - Foot deformity [Unknown]
  - Abdominal discomfort [Recovered/Resolved]
  - Constipation [Unknown]
  - Therapy cessation [Unknown]

NARRATIVE: CASE EVENT DATE: 20250108
